FAERS Safety Report 6308176-6 (Version None)
Quarter: 2009Q3

REPORT INFORMATION
  Report Type: 
  Country: None (occurrence: None)
  Receive Date: 20090810
  Receipt Date: 20090730
  Transmission Date: 20100115
  Serious: Yes (Hospitalization)
  Sender: FDA-Public Use
  Company Number: 343387

PATIENT
  Age: 58 Year
  Sex: Male
  Weight: 74 kg

DRUGS (3)
  1. CYTARABINE [Suspect]
     Indication: ACUTE MYELOID LEUKAEMIA
     Dosage: 2160 MG,; 2160 MG SUBCUTANEOUS
     Route: 058
     Dates: start: 20090621
  2. ETOPOSIDE [Suspect]
     Indication: ACUTE MYELOID LEUKAEMIA
     Dosage: 900 MG,
     Dates: start: 20090617
  3. DAUNORUBICIN HCL [Suspect]
     Indication: ACUTE MYELOID LEUKAEMIA
     Dosage: 815 MG,
     Dates: start: 20090617

REACTIONS (25)
  - ATELECTASIS [None]
  - BRONCHOSCOPY ABNORMAL [None]
  - BUNDLE BRANCH BLOCK LEFT [None]
  - CANDIDIASIS [None]
  - CHILLS [None]
  - COUGH [None]
  - DENTAL DISCOMFORT [None]
  - DIZZINESS [None]
  - DYSURIA [None]
  - EJECTION FRACTION DECREASED [None]
  - ENTEROBACTER INFECTION [None]
  - FATIGUE [None]
  - HYPOGLYCAEMIA [None]
  - HYPOTENSION [None]
  - LEFT VENTRICULAR DYSFUNCTION [None]
  - MYOCARDIAL ISCHAEMIA [None]
  - NAUSEA [None]
  - OEDEMA PERIPHERAL [None]
  - PAIN IN JAW [None]
  - PANCYTOPENIA [None]
  - PNEUMONIA [None]
  - SINUS TACHYCARDIA [None]
  - TOOTH ABSCESS [None]
  - TROPONIN INCREASED [None]
  - VOMITING [None]
